FAERS Safety Report 10063517 (Version 1)
Quarter: 2014Q2

REPORT INFORMATION
  Report Type: Spontaneous
  Country: US (occurrence: US)
  Receive Date: 20140407
  Receipt Date: 20140407
  Transmission Date: 20141212
  Serious: Yes (Other)
  Sender: FDA-Public Use
  Company Number: US-ELI_LILLY_AND_COMPANY-US201403010339

PATIENT
  Sex: Female

DRUGS (7)
  1. HUMALOG LISPRO [Suspect]
     Indication: TYPE 1 DIABETES MELLITUS
     Dosage: UNK
     Dates: start: 2000
  2. ADVAIR [Concomitant]
  3. BONIVA [Concomitant]
  4. HYDROXYZINE HCL [Concomitant]
  5. LEVOTHYROXINE [Concomitant]
  6. LEXAPRO [Concomitant]
  7. LIPITOR [Concomitant]

REACTIONS (3)
  - Fall [Unknown]
  - Femur fracture [Unknown]
  - Lower limb fracture [Unknown]
